FAERS Safety Report 14980788 (Version 1)
Quarter: 2018Q2

REPORT INFORMATION
  Report Type: Report from Study
  Country: US (occurrence: US)
  Receive Date: 20180606
  Receipt Date: 20180606
  Transmission Date: 20180711
  Serious: Yes (Hospitalization, Other)
  Sender: FDA-Public Use
  Company Number: US-SHIRE-US201820906

PATIENT
  Sex: Female

DRUGS (1)
  1. GATTEX [Suspect]
     Active Substance: TEDUGLUTIDE\WATER
     Indication: SHORT-BOWEL SYNDROME
     Dosage: 3.06 MG, 1X/DAY:QD
     Route: 058
     Dates: start: 20180217

REACTIONS (3)
  - Sepsis [Unknown]
  - Cellulitis [Unknown]
  - Fluid overload [Recovered/Resolved]
